FAERS Safety Report 15264387 (Version 1)
Quarter: 2018Q4

REPORT INFORMATION
  Report Type: Spontaneous
  Country: US (occurrence: US)
  Receive Date: 20180810
  Receipt Date: 20180810
  Transmission Date: 20190204
  Serious: Yes (Other)
  Sender: FDA-Public Use
  Company Number: US-LPDUSPRD-20181422

PATIENT
  Age: 66 Year
  Sex: Male

DRUGS (6)
  1. IRNIOTECAN [Suspect]
     Active Substance: IRINOTECAN
     Dosage: UNKNOWN
     Route: 065
     Dates: start: 2015, end: 2016
  2. LEUCOVORIN CALCIUM INJECTION (0517-8605-25) [Suspect]
     Active Substance: LEUCOVORIN CALCIUM
     Dosage: UNKNOWN
     Route: 065
     Dates: start: 2015, end: 2015
  3. BEVACIZUMAB. [Suspect]
     Active Substance: BEVACIZUMAB
     Dosage: UNKNOWN
     Route: 065
     Dates: start: 2015, end: 2015
  4. CETUXIMAB. [Suspect]
     Active Substance: CETUXIMAB
     Dosage: UNKNOWN
     Route: 065
     Dates: start: 2015, end: 2016
  5. 5-FLUOROURACIL [Suspect]
     Active Substance: FLUOROURACIL
     Dosage: UNKNOWN
     Route: 065
     Dates: start: 2015, end: 2015
  6. OXALIPLATIN. [Suspect]
     Active Substance: OXALIPLATIN
     Dosage: UNKNOWN
     Route: 065
     Dates: start: 2015, end: 2015

REACTIONS (6)
  - Conjunctivitis [Unknown]
  - Fatigue [Unknown]
  - Alopecia [Unknown]
  - Hypomagnesaemia [Unknown]
  - Peripheral sensory neuropathy [Unknown]
  - Rash pustular [Unknown]
